FAERS Safety Report 6734395 (Version 2)
Quarter: 2013Q1

REPORT INFORMATION
  Report Type: Spontaneous
  Country: US (occurrence: US)
  Receive Date: 20080822
  Receipt Date: 20130103
  Transmission Date: 20140127
  Serious: No
  Sender: FDA-Public Use
  Company Number: US-ABBOTT-07P-163-0425467-00

PATIENT
  Sex: Female
  Weight: 76.27 kg

DRUGS (14)
  1. SYNTHROID [Suspect]
     Indication: THYROIDECTOMY
     Route: 048
     Dates: start: 2002, end: 2010
  2. SYNTHROID [Suspect]
     Indication: THYROID CANCER
  3. SYNTHROID [Suspect]
     Indication: AUTOIMMUNE THYROIDITIS
  4. SYNTHROID [Suspect]
     Indication: AUTOIMMUNE THYROIDITIS
     Dates: start: 2010, end: 201204
  5. SYNTHROID [Suspect]
     Indication: THYROIDECTOMY
  6. SYNTHROID [Suspect]
     Indication: THYROID CANCER
  7. SYNTHROID [Suspect]
     Indication: AUTOIMMUNE THYROIDITIS
     Dates: start: 201204
  8. SYNTHROID [Suspect]
     Indication: THYROIDECTOMY
  9. SYNTHROID [Suspect]
     Indication: THYROID CANCER
  10. NEXIUM [Concomitant]
     Indication: GASTROOESOPHAGEAL REFLUX DISEASE
     Route: 048
  11. TRIAMTERENE + HYDROCHLOROTHIAZIDE [Concomitant]
     Indication: DIURETIC THERAPY
     Route: 048
  12. ASPIRIN [Concomitant]
     Indication: PRODUCT USED FOR UNKNOWN INDICATION
  13. HYDROCHLOROTHIAZIDE [Concomitant]
     Indication: PRODUCT USED FOR UNKNOWN INDICATION
  14. RED YEAST RICE [Concomitant]
     Indication: PRODUCT USED FOR UNKNOWN INDICATION

REACTIONS (5)
  - Weight increased [Not Recovered/Not Resolved]
  - Abdominal distension [Not Recovered/Not Resolved]
  - Palpitations [Recovering/Resolving]
  - Tremor [Recovering/Resolving]
  - Blood thyroid stimulating hormone decreased [Not Recovered/Not Resolved]
